FAERS Safety Report 5764787 (Version 1)
Quarter: 2020Q3

REPORT INFORMATION
  Report Type: Report from Study
  Country: US (occurrence: US)
  Receive Date: 20050324
  Receipt Date: 20050324
  Transmission Date: 20201104
  Serious: Yes (Hospitalization)
  Sender: FDA-Public Use
  Company Number: US-JNJFOC-20050303915

PATIENT
  Age: 37 Year
  Sex: Female

DRUGS (2)
  1. INFLIXIMAB [Suspect]
     Active Substance: INFLIXIMAB
  2. INFLIXIMAB [Suspect]
     Active Substance: INFLIXIMAB
     Indication: CROHN^S DISEASE
     Dosage: TOTAL 8 DOSES

REACTIONS (13)
  - Rectal cancer [None]
  - Crohn^s disease [Unknown]
  - Inflammation [None]
  - Weight decreased [None]
  - Ovarian cyst [None]
  - Abdominal tenderness [None]
  - Wound infection [None]
  - Colon cancer [Unknown]
  - Abdominal abscess [None]
  - Proctalgia [None]
  - Post procedural complication [None]
  - Granuloma [None]
  - Metastasis [None]

NARRATIVE: CASE EVENT DATE: 20040501
